FAERS Safety Report 18434709 (Version 1)
Quarter: 2020Q4

REPORT INFORMATION
  Report Type: Spontaneous
  Country: TR (occurrence: TR)
  Receive Date: 20201028
  Receipt Date: 20201028
  Transmission Date: 20210114
  Serious: No
  Sender: FDA-Public Use
  Company Number: TR-LUPIN PHARMACEUTICALS INC.-2020-06677

PATIENT
  Age: 18 Year
  Sex: Male

DRUGS (2)
  1. LIDOCAINE. [Suspect]
     Active Substance: LIDOCAINE
     Indication: PRODUCT USED FOR UNKNOWN INDICATION
     Dosage: UNK
     Route: 065
  2. TRIAMCINOLONE [Suspect]
     Active Substance: TRIAMCINOLONE
     Indication: ALOPECIA AREATA
     Dosage: UNK (FOUR SESSIONS APPLIED WITH MONTHLY INTERVALS (4 MG/ML)
     Route: 026

REACTIONS (3)
  - Reaction to excipient [Recovering/Resolving]
  - Foreign body reaction [Recovering/Resolving]
  - Skin lesion [Recovering/Resolving]
